FAERS Safety Report 9504523 (Version 2)
Quarter: 2014Q3

REPORT INFORMATION
  Report Type: Report from Study
  Country: AU (occurrence: AU)
  Receive Date: 20130906
  Receipt Date: 20140703
  Transmission Date: 20150326
  Serious: Yes (Other)
  Sender: FDA-Public Use
  Company Number: PHHY2013AU095421

PATIENT
  Age: 37 Year
  Sex: Male

DRUGS (12)
  1. TACROLIMUS. [Suspect]
     Active Substance: TACROLIMUS
     Indication: IMMUNOSUPPRESSION
     Dosage: UNK UKN, UNK
  2. NYSTATIN. [Concomitant]
     Active Substance: NYSTATIN
     Dosage: UNK UKN, UNK
  3. BACTRIM [Concomitant]
     Active Substance: SULFAMETHOXAZOLE\TRIMETHOPRIM
     Dosage: UNK UKN, UNK
  4. CORTICOSTEROIDS [Concomitant]
     Active Substance: CORTICOSTEROID NOS
     Dosage: UNK UKN, UNK
  5. CERTICAN [Concomitant]
     Active Substance: EVEROLIMUS
     Indication: IMMUNOSUPPRESSION
     Dosage: 700 MG, QD
  6. METHYLPREDNISOLONE [Concomitant]
     Active Substance: METHYLPREDNISOLONE
     Indication: IMMUNOSUPPRESSION
     Dosage: UNK UKN, UNK
  7. SULFAMETHOXAZOLE AND TRIMETHOPRIM [Concomitant]
     Active Substance: SULFAMETHOXAZOLE\TRIMETHOPRIM
     Dosage: UNK UKN, UNK
  8. SIMULECT [Suspect]
     Active Substance: BASILIXIMAB
     Indication: IMMUNOSUPPRESSION
     Dosage: UNK UKN, UNK
  9. PANTOPRAZOLE [Concomitant]
     Active Substance: PANTOPRAZOLE SODIUM
     Dosage: UNK UKN, UNK
  10. MYCOPHENOLATE MOFETIL. [Concomitant]
     Active Substance: MYCOPHENOLATE MOFETIL
     Indication: IMMUNOSUPPRESSION
     Dosage: UNK UKN, UNK
  11. AZATHIOPRINE. [Concomitant]
     Active Substance: AZATHIOPRINE
     Dosage: UNK UKN, UNK
  12. VALGANCICLOVIR [Concomitant]
     Active Substance: VALGANCICLOVIR
     Dosage: UNK UKN, UNK

REACTIONS (21)
  - Fibrosis [Unknown]
  - Pyloric stenosis [Unknown]
  - Oedema mucosal [Unknown]
  - Sclerosing encapsulating peritonitis [Recovered/Resolved]
  - Intestinal obstruction [Unknown]
  - Abdominal distension [Recovered/Resolved]
  - Device related infection [Unknown]
  - Ascites [Unknown]
  - Decreased appetite [Recovering/Resolving]
  - Peritonitis bacterial [Unknown]
  - Proteinuria [Unknown]
  - Blood albumin decreased [Recovered/Resolved]
  - Diarrhoea [Recovered/Resolved]
  - Small intestinal obstruction [Recovering/Resolving]
  - Vomiting [Recovered/Resolved]
  - Weight decreased [Recovering/Resolving]
  - Staphylococcal infection [Unknown]
  - Cytomegalovirus gastritis [Unknown]
  - Abdominal pain [Recovered/Resolved]
  - Leukopenia [Unknown]
  - Malnutrition [Unknown]
